FAERS Safety Report 15451905 (Version 3)
Quarter: 2018Q4

REPORT INFORMATION
  Report Type: Spontaneous
  Country: US (occurrence: US)
  Receive Date: 20181001
  Receipt Date: 20181213
  Transmission Date: 20190204
  Serious: No
  Sender: FDA-Public Use
  Company Number: US-GLAXOSMITHKLINE-US2018173526

PATIENT
  Age: 71 Year
  Sex: Male

DRUGS (1)
  1. BREO ELLIPTA [Suspect]
     Active Substance: FLUTICASONE FUROATE\VILANTEROL TRIFENATATE
     Indication: CHRONIC OBSTRUCTIVE PULMONARY DISEASE
     Dosage: 1 PUFF(S), 1D
     Route: 055

REACTIONS (7)
  - Drug ineffective [Unknown]
  - Intentional underdose [Unknown]
  - Off label use [Unknown]
  - Intentional product misuse [Unknown]
  - Extra dose administered [Unknown]
  - Overdose [Unknown]
  - Product complaint [Unknown]

NARRATIVE: CASE EVENT DATE: 20180924
